FAERS Safety Report 4565378-7 (Version None)
Quarter: 2005Q1

REPORT INFORMATION
  Report Type: 
  Country: None (occurrence: None)
  Receive Date: 20050131
  Receipt Date: 20030605
  Transmission Date: 20050727
  Serious: Yes (Hospitalization, Disabling, Other)
  Sender: FDA-Public Use
  Company Number: US-MERCK-0306USA00836

PATIENT
  Age: 59 Year
  Sex: Male
  Weight: 78 kg

DRUGS (20)
  1. VIOXX [Suspect]
     Indication: OSTEOARTHRITIS
     Route: 048
     Dates: start: 20000629, end: 20011103
  2. VIOXX [Suspect]
     Indication: ARTHRALGIA
     Route: 048
     Dates: start: 20000629, end: 20011103
  3. CARAFATE [Concomitant]
     Route: 048
  4. ATENOLOL [Concomitant]
     Route: 048
  5. REGLAN [Concomitant]
     Route: 048
  6. THEO-DUR [Concomitant]
     Route: 048
  7. ALDACTONE [Concomitant]
     Route: 048
  8. PHENERGAN TABLETS/SUPPOSITORIES [Concomitant]
     Indication: NAUSEA
     Route: 048
  9. FLOVENT [Concomitant]
     Route: 055
  10. COMBIVENT [Concomitant]
     Route: 055
  11. ELAVIL [Concomitant]
     Route: 048
  12. NITROSTAT [Concomitant]
     Route: 060
  13. BUSPAR [Concomitant]
     Route: 048
  14. METHADONE HYDROCHLORIDE [Concomitant]
     Route: 048
  15. SEREVENT DISKHALER [Concomitant]
     Route: 055
  16. FLONASE [Concomitant]
     Route: 055
     Dates: start: 20000629
  17. ZANTAC [Concomitant]
     Route: 065
  18. IRON (UNSPECIFIED) [Concomitant]
     Route: 048
  19. FOSFREE [Concomitant]
     Route: 065
  20. ULTRAM [Concomitant]
     Indication: PAIN
     Route: 048

REACTIONS (28)
  - ABDOMINAL PAIN UPPER [None]
  - ADVERSE EVENT [None]
  - ANASTOMOTIC STENOSIS [None]
  - ANASTOMOTIC ULCER [None]
  - BILIARY DILATATION [None]
  - BLOOD PRESSURE INCREASED [None]
  - BURSITIS [None]
  - CANDIDIASIS [None]
  - CAROTID ARTERY STENOSIS [None]
  - CARPAL TUNNEL SYNDROME [None]
  - COLONIC POLYP [None]
  - CORONARY ARTERY DISEASE [None]
  - DYSPHAGIA [None]
  - HEADACHE [None]
  - HYPERLIPIDAEMIA [None]
  - IMPAIRED GASTRIC EMPTYING [None]
  - INJURY [None]
  - MYOCARDIAL ISCHAEMIA [None]
  - OEDEMA [None]
  - ORTHOSTATIC HYPOTENSION [None]
  - OSTEOARTHRITIS [None]
  - PAIN [None]
  - PEPTIC ULCER HAEMORRHAGE [None]
  - PROTHROMBIN LEVEL INCREASED [None]
  - SYNCOPE [None]
  - TENOSYNOVITIS [None]
  - UPPER RESPIRATORY TRACT INFECTION [None]
  - VESTIBULAR NEURONITIS [None]
